FAERS Safety Report 6832493-4 (Version None)
Quarter: 2010Q3

REPORT INFORMATION
  Report Type: 
  Country: None (occurrence: None)
  Receive Date: 20100707
  Receipt Date: 20100622
  Transmission Date: 20110219
  Serious: Yes (Death)
  Sender: FDA-Public Use
  Company Number: 1000014828

PATIENT
  Age: 38 Year
  Sex: Male

DRUGS (5)
  1. CITALOPRAM HYDROBROMIDE [Suspect]
  2. DIAZEPAM [Concomitant]
  3. METHADONE [Concomitant]
  4. TETRAHYDROCANNABINOL [Concomitant]
  5. TEMAZEPAM [Concomitant]

REACTIONS (2)
  - DRUG TOXICITY [None]
  - PULMONARY CONGESTION [None]
